FAERS Safety Report 6145208-2 (Version None)
Quarter: 2009Q2

REPORT INFORMATION
  Report Type: 
  Country: None (occurrence: None)
  Receive Date: 20090406
  Receipt Date: 20090331
  Transmission Date: 20091009
  Serious: Yes (Other)
  Sender: FDA-Public Use
  Company Number: US-ASTRAZENECA-2009UW08103

PATIENT
  Age: 92 Year
  Sex: Female
  Weight: 56.7 kg

DRUGS (2)
  1. SEROQUEL [Suspect]
     Indication: DEMENTIA
     Route: 048
     Dates: start: 20081101, end: 20090301
  2. A LOT OF MEDICATION [Concomitant]

REACTIONS (2)
  - CARDIAC FAILURE [None]
  - SOMNOLENCE [None]
